FAERS Safety Report 15832441 (Version 1)
Quarter: 2019Q1

REPORT INFORMATION
  Report Type: Spontaneous
  Country: US (occurrence: US)
  Receive Date: 20190116
  Receipt Date: 20190116
  Transmission Date: 20190417
  Serious: Yes (Hospitalization)
  Sender: FDA-Public Use
  Company Number: US-MYLANLABS-2019M1001302

PATIENT
  Age: 1 Year
  Sex: Female
  Weight: 9.4 kg

DRUGS (2)
  1. TIMOLOL. [Suspect]
     Active Substance: TIMOLOL
     Dosage: FEW DROPS
     Route: 048
  2. TIMOLOL. [Suspect]
     Active Substance: TIMOLOL
     Indication: HAEMANGIOMA
     Dosage: UNK
     Route: 061

REACTIONS (8)
  - Body temperature decreased [Recovered/Resolved]
  - Hyperhidrosis [Recovered/Resolved]
  - Sinus bradycardia [Recovered/Resolved]
  - Hypoglycaemia [Recovered/Resolved]
  - Toxicity to various agents [Recovered/Resolved]
  - Lethargy [Recovered/Resolved]
  - Accidental overdose [Recovered/Resolved]
  - Incorrect route of product administration [Recovered/Resolved]
